FAERS Safety Report 11522646 (Version 1)
Quarter: 2015Q3

REPORT INFORMATION
  Report Type: Spontaneous
  Country: US (occurrence: US)
  Receive Date: 20150903
  Receipt Date: 20150903
  Transmission Date: 20151125
  Serious: No
  Sender: FDA-Public Use
  Company Number: US-ELI_LILLY_AND_COMPANY-US201301009360

PATIENT
  Age: 57 Year
  Sex: Female

DRUGS (7)
  1. CYMBALTA [Suspect]
     Active Substance: DULOXETINE HYDROCHLORIDE
     Dosage: 30 MG, QD
     Dates: start: 20130108, end: 20130114
  2. CYMBALTA [Suspect]
     Active Substance: DULOXETINE HYDROCHLORIDE
     Indication: GENERALISED ANXIETY DISORDER
     Dosage: 60 MG, QD
  3. CYMBALTA [Suspect]
     Active Substance: DULOXETINE HYDROCHLORIDE
     Dosage: 60 MG, QD
     Dates: end: 20121221
  4. CYMBALTA [Suspect]
     Active Substance: DULOXETINE HYDROCHLORIDE
     Dosage: 30 MG, EACH EVENING
     Dates: start: 20130127
  5. CYMBALTA [Suspect]
     Active Substance: DULOXETINE HYDROCHLORIDE
     Dosage: 60 MG, QOD
     Dates: start: 20130101, end: 20130107
  6. CYMBALTA [Suspect]
     Active Substance: DULOXETINE HYDROCHLORIDE
     Dosage: 30 MG, QOD
     Dates: start: 20130115, end: 20130121
  7. CYMBALTA [Suspect]
     Active Substance: DULOXETINE HYDROCHLORIDE
     Dosage: 30 MG, QOD
     Dates: start: 20130101, end: 20130107

REACTIONS (15)
  - Vision blurred [Unknown]
  - Hypertension [Unknown]
  - Nausea [Unknown]
  - Gait disturbance [Unknown]
  - Neck pain [Unknown]
  - Insomnia [Unknown]
  - Diarrhoea [Unknown]
  - Hangover [Unknown]
  - Drug withdrawal syndrome [Unknown]
  - Intentional product misuse [Unknown]
  - Influenza like illness [Unknown]
  - Tremor [Unknown]
  - Hyperhidrosis [Unknown]
  - Headache [Unknown]
  - Heart rate increased [Unknown]

NARRATIVE: CASE EVENT DATE: 20130101
